FAERS Safety Report 20204064 (Version 1)
Quarter: 2021Q4

REPORT INFORMATION
  Report Type: Spontaneous
  Country: FI (occurrence: FI)
  Receive Date: 20211220
  Receipt Date: 20211220
  Transmission Date: 20220303
  Serious: Yes (Life-Threatening, Other)
  Sender: FDA-Public Use
  Company Number: None

PATIENT
  Age: 76 Year
  Sex: Female

DRUGS (13)
  1. LEVEMIR [Concomitant]
     Active Substance: INSULIN DETEMIR
     Indication: Type 2 diabetes mellitus
     Dosage: 36,IU,DAILY
     Route: 058
     Dates: start: 20101014
  2. SPARTOFER [Concomitant]
     Indication: Anaemia
     Dosage: 100,MG,DAILY
     Route: 048
     Dates: start: 20210909
  3. ENALAPRIL MALEATE [Concomitant]
     Active Substance: ENALAPRIL MALEATE
     Indication: Hypertension
     Dosage: 20,MG,DAILY
     Route: 048
     Dates: start: 20181122
  4. METFORMIN HYDROCHLORIDE [Concomitant]
     Active Substance: METFORMIN HYDROCHLORIDE
     Indication: Type 2 diabetes mellitus
     Dosage: 1500,MG,DAILY
     Route: 048
     Dates: start: 20210704
  5. ASPIRIN [Concomitant]
     Active Substance: ASPIRIN
     Indication: Product used for unknown indication
     Dosage: 100,MG,DAILY
     Route: 048
     Dates: start: 20200311
  6. FUROSEMIDE [Concomitant]
     Active Substance: FUROSEMIDE
     Indication: Hypertension
     Dosage: 20,MG,DAILY
     Route: 048
     Dates: start: 20210909
  7. AMLODIPINE BESYLATE [Concomitant]
     Active Substance: AMLODIPINE BESYLATE
     Indication: Hypertension
     Dosage: 5,MG,DAILY
     Route: 048
     Dates: start: 20200226
  8. BISOPROLOL [Concomitant]
     Active Substance: BISOPROLOL
     Indication: Hypertension
     Dosage: 2.5,MG,DAILY
     Route: 048
     Dates: start: 20200330
  9. JARDIANCE [Suspect]
     Active Substance: EMPAGLIFLOZIN
     Indication: Type 2 diabetes mellitus
     Dosage: 25,MG,DAILY
     Route: 048
     Dates: start: 20210909, end: 20211128
  10. PLAVIX [Concomitant]
     Active Substance: CLOPIDOGREL BISULFATE
     Indication: Product used for unknown indication
     Dosage: 75,MG,DAILY
     Route: 048
     Dates: start: 20200311
  11. ALLOPURINOL [Concomitant]
     Active Substance: ALLOPURINOL
     Indication: Gout
     Dosage: 100,MG,DAILY
     Route: 048
     Dates: start: 20151222
  12. ORMOX [Concomitant]
     Indication: Coronary artery disease
     Dosage: 20,MG,DAILY
     Route: 048
     Dates: start: 20200311
  13. ATORVASTATIN [Concomitant]
     Active Substance: ATORVASTATIN
     Indication: Hypercholesterolaemia
     Dosage: 40,MG,DAILY
     Route: 048
     Dates: start: 20200311

REACTIONS (4)
  - Diabetic ketoacidosis [Recovering/Resolving]
  - Oxygen saturation decreased [Recovering/Resolving]
  - Pulse pressure increased [Recovering/Resolving]
  - Fall [Recovering/Resolving]

NARRATIVE: CASE EVENT DATE: 20211128
